FAERS Safety Report 23240230 (Version 1)
Quarter: 2023Q4

REPORT INFORMATION
  Report Type: Spontaneous
  Country: US (occurrence: None)
  Receive Date: 20231128
  Receipt Date: 20231128
  Transmission Date: 20240110
  Serious: Yes (Life-Threatening, Hospitalization)
  Sender: FDA-Public Use
  Company Number: None

PATIENT
  Age: 69 Year
  Sex: Male
  Weight: 94.5 kg

DRUGS (1)
  1. ENTRESTO [Suspect]
     Active Substance: SACUBITRIL\VALSARTAN

REACTIONS (7)
  - Nausea [None]
  - Visual impairment [None]
  - Vomiting [None]
  - Vision blurred [None]
  - Blood potassium increased [None]
  - Renal failure [None]
  - Dialysis [None]

NARRATIVE: CASE EVENT DATE: 20230317
